FAERS Safety Report 23534288 (Version 1)
Quarter: 2024Q1

REPORT INFORMATION
  Report Type: Report from Study
  Country: BG (occurrence: BG)
  Receive Date: 20240217
  Receipt Date: 20240217
  Transmission Date: 20240410
  Serious: Yes (Hospitalization, Other)
  Sender: FDA-Public Use
  Company Number: BG-ABBVIE-5641844

PATIENT
  Age: 69 Year
  Sex: Male

DRUGS (2)
  1. CARBIDOPA\LEVODOPA [Suspect]
     Active Substance: CARBIDOPA\LEVODOPA
     Indication: Parkinson^s disease
     Dosage: MD- 10ML CR- 4,5ML/H EX- 2,0ML
     Route: 050
     Dates: start: 20200121, end: 20240209
  2. CARBIDOPA\LEVODOPA [Suspect]
     Active Substance: CARBIDOPA\LEVODOPA

REACTIONS (12)
  - General physical health deterioration [Recovered/Resolved]
  - Pain in extremity [Recovered/Resolved]
  - Joint injury [Not Recovered/Not Resolved]
  - Dementia [Unknown]
  - Dermatitis [Recovered/Resolved]
  - Femur fracture [Not Recovered/Not Resolved]
  - Atrophy [Unknown]
  - Joint dislocation [Not Recovered/Not Resolved]
  - Suicidal ideation [Unknown]
  - Lacunar infarction [Unknown]
  - Bone deformity [Not Recovered/Not Resolved]
  - Intentional self-injury [Unknown]

NARRATIVE: CASE EVENT DATE: 20240205
